FAERS Safety Report 15665735 (Version 1)
Quarter: 2018Q4

REPORT INFORMATION
  Report Type: Spontaneous
  Country: US (occurrence: US)
  Receive Date: 20181128
  Receipt Date: 20181128
  Transmission Date: 20190205
  Serious: Yes (Death, Hospitalization)
  Sender: FDA-Public Use
  Company Number: US-TASMAN PHARMA, INC.-2018TSM00183

PATIENT
  Age: 66 Year
  Sex: Male

DRUGS (3)
  1. QUETIAPINE. [Suspect]
     Active Substance: QUETIAPINE
     Dosage: 400 MG
     Route: 065
  2. CLOZAPINE. [Suspect]
     Active Substance: CLOZAPINE
     Dosage: 100 MG, EVERY 12 HOURS
     Route: 065
  3. QUETIAPINE. [Suspect]
     Active Substance: QUETIAPINE
     Dosage: 400 MG, ONCE

REACTIONS (5)
  - Gastrointestinal necrosis [Fatal]
  - Acute respiratory distress syndrome [Recovered/Resolved]
  - Aspiration [Recovered/Resolved]
  - Bacteraemia [Fatal]
  - Septic shock [Fatal]
